FAERS Safety Report 7509061-4 (Version None)
Quarter: 2011Q2

REPORT INFORMATION
  Report Type: 
  Country: None (occurrence: None)
  Receive Date: 20110519
  Receipt Date: 20100823
  Transmission Date: 20111010
  Serious: Yes (Hospitalization)
  Sender: FDA-Public Use
  Company Number: 2010SP045235

PATIENT
  Age: 37 Year
  Sex: Female

DRUGS (4)
  1. GAVISCON [Suspect]
     Indication: PRODUCT USED FOR UNKNOWN INDICATION
     Dosage: PO
     Route: 048
     Dates: start: 20091001, end: 20091014
  2. FORMOTEROL FUMARATE [Suspect]
     Indication: DYSPNOEA
     Dosage: 2 DF, QD, RESP
     Route: 055
     Dates: start: 20091009, end: 20091014
  3. CELESTONE [Suspect]
     Indication: DYSPNOEA
     Dosage: 2 DF, QD
     Dates: start: 20091009, end: 20091014
  4. DESOGESTREL AND ETHINYL ESTRADIOL [Suspect]
     Indication: ORAL CONTRACEPTION
     Dosage: 1 DF, QD, PO
     Route: 048
     Dates: end: 20091014

REACTIONS (7)
  - INFLAMMATION [None]
  - HYPOCAPNIA [None]
  - PULMONARY EMBOLISM [None]
  - DEEP VEIN THROMBOSIS [None]
  - PULMONARY INFARCTION [None]
  - BORDETELLA TEST POSITIVE [None]
  - INSOMNIA [None]
